FAERS Safety Report 23711472 (Version 5)
Quarter: 2025Q1

REPORT INFORMATION
  Report Type: Spontaneous
  Country: GB (occurrence: GB)
  Receive Date: 20240405
  Receipt Date: 20250220
  Transmission Date: 20250408
  Serious: Yes (Other)
  Sender: AMGEN
  Company Number: GB-Vifor (International) Inc.-VIT-2024-02952

PATIENT
  Age: 32 Year
  Sex: Female
  Weight: 86.4 kg

DRUGS (26)
  1. TAVNEOS [Suspect]
     Active Substance: AVACOPAN
     Indication: Anti-neutrophil cytoplasmic antibody positive vasculitis
     Dosage: 30 MG, BID
     Route: 048
     Dates: start: 20231128, end: 202312
  2. TAVNEOS [Suspect]
     Active Substance: AVACOPAN
     Route: 065
  3. DARBEPOETIN ALFA [Concomitant]
     Active Substance: DARBEPOETIN ALFA
     Indication: Anaemia
     Dosage: 40,MUG,QOW
     Route: 058
     Dates: start: 20240227, end: 20240514
  4. DARBEPOETIN ALFA [Concomitant]
     Active Substance: DARBEPOETIN ALFA
     Indication: Nephrogenic anaemia
     Route: 058
     Dates: start: 20240514
  5. OMEPRAZOLE [Concomitant]
     Active Substance: OMEPRAZOLE
     Indication: Gastrointestinal disorder prophylaxis
     Dosage: 40 MILLIGRAM, QD
     Route: 048
     Dates: start: 20231128, end: 20240429
  6. OMEPRAZOLE [Concomitant]
     Active Substance: OMEPRAZOLE
     Dosage: 20 MILLIGRAM, QD
     Route: 048
     Dates: start: 20240429
  7. PREDNISOLONE [Concomitant]
     Active Substance: PREDNISOLONE
     Indication: Anti-neutrophil cytoplasmic antibody positive vasculitis
     Dosage: WEANING DOSE
     Route: 048
     Dates: start: 20231128, end: 20231205
  8. PREDNISOLONE [Concomitant]
     Active Substance: PREDNISOLONE
     Dosage: WEANING DOSE
     Route: 048
     Dates: start: 20231206, end: 20231220
  9. PREDNISOLONE [Concomitant]
     Active Substance: PREDNISOLONE
     Dosage: WEANING DOSE
     Route: 048
     Dates: start: 20231220, end: 20240115
  10. PREDNISOLONE [Concomitant]
     Active Substance: PREDNISOLONE
     Dosage: WEANING DOSE
     Route: 048
     Dates: start: 20240116, end: 20240129
  11. PREDNISOLONE [Concomitant]
     Active Substance: PREDNISOLONE
     Dosage: WEANING DOSE
     Route: 048
     Dates: start: 20240130, end: 20240213
  12. PREDNISOLONE [Concomitant]
     Active Substance: PREDNISOLONE
     Dosage: 5 MILLIGRAM, QD
     Route: 048
     Dates: start: 20240213, end: 20240213
  13. CALCIUM CARBONATE\CHOLECALCIFEROL [Concomitant]
     Active Substance: CALCIUM CARBONATE\CHOLECALCIFEROL
     Indication: Prophylaxis
     Dosage: 2 DOSAGE FORM, QD
     Route: 048
     Dates: start: 20231128
  14. BECLOMETHASONE\FORMOTEROL [Concomitant]
     Active Substance: BECLOMETHASONE\FORMOTEROL
     Indication: Asthma
     Dosage: 100,MUG,BID
     Route: 065
     Dates: start: 20231117
  15. COTRIMOXAZOLE [Concomitant]
     Active Substance: SULFAMETHOXAZOLE\TRIMETHOPRIM
     Indication: Prophylaxis
     Dosage: 480,MG,QD
     Route: 048
     Dates: start: 20231128
  16. AZATHIOPRINE [Concomitant]
     Active Substance: AZATHIOPRINE
     Indication: Anti-neutrophil cytoplasmic antibody positive vasculitis
     Dosage: 175 MILLIGRAM, QD
     Route: 048
     Dates: start: 20240311, end: 20240325
  17. AZATHIOPRINE [Concomitant]
     Active Substance: AZATHIOPRINE
     Dosage: 175 MILLIGRAM, QD
     Route: 048
     Dates: start: 20240325, end: 20240417
  18. AZATHIOPRINE [Concomitant]
     Active Substance: AZATHIOPRINE
     Dosage: 125 MILLIGRAM, QD
     Route: 048
     Dates: start: 20240417, end: 20240429
  19. CYCLOPHOSPHAMIDE [Concomitant]
     Active Substance: CYCLOPHOSPHAMIDE
     Indication: Anti-neutrophil cytoplasmic antibody positive vasculitis
     Route: 040
     Dates: start: 20231128, end: 20231128
  20. CYCLOPHOSPHAMIDE [Concomitant]
     Active Substance: CYCLOPHOSPHAMIDE
     Route: 040
     Dates: start: 20231212, end: 20231212
  21. CYCLOPHOSPHAMIDE [Concomitant]
     Active Substance: CYCLOPHOSPHAMIDE
     Route: 040
     Dates: start: 20240118, end: 20240118
  22. CYCLOPHOSPHAMIDE [Concomitant]
     Active Substance: CYCLOPHOSPHAMIDE
     Route: 040
     Dates: start: 20240208, end: 20240208
  23. CYCLOPHOSPHAMIDE [Concomitant]
     Active Substance: CYCLOPHOSPHAMIDE
     Route: 040
     Dates: start: 20240229, end: 20240229
  24. CYCLOPHOSPHAMIDE [Concomitant]
     Active Substance: CYCLOPHOSPHAMIDE
     Route: 040
     Dates: start: 20231228, end: 20231228
  25. HUMAN PLASMA [Concomitant]
     Active Substance: HUMAN PLASMA
     Indication: Anti-neutrophil cytoplasmic antibody positive vasculitis
     Route: 040
     Dates: start: 20231201, end: 20231211
  26. MYCOPHENOLIC ACID [Concomitant]
     Active Substance: MYCOPHENOLIC ACID
     Indication: Anti-neutrophil cytoplasmic antibody positive vasculitis
     Dosage: 250 MG, BID
     Route: 048
     Dates: start: 20240429

REACTIONS (3)
  - Leukopenia [Recovered/Resolved]
  - Alanine aminotransferase increased [Recovered/Resolved]
  - Nausea [Recovered/Resolved]

NARRATIVE: CASE EVENT DATE: 20231215
